FAERS Safety Report 10432126 (Version 1)
Quarter: 2014Q3

REPORT INFORMATION
  Report Type: Spontaneous
  Country: FR (occurrence: FR)
  Receive Date: 20140905
  Receipt Date: 20140905
  Transmission Date: 20150326
  Serious: Yes (Hospitalization, Other)
  Sender: FDA-Public Use
  Company Number: FR-BRISTOL-MYERS SQUIBB COMPANY-21347430

PATIENT
  Age: 46 Year
  Sex: Female

DRUGS (5)
  1. LAMICTAL [Suspect]
     Active Substance: LAMOTRIGINE
     Indication: DEPRESSION
     Dosage: 1DF: 200 TO 300MG
     Route: 048
     Dates: start: 200905, end: 201407
  2. SEROPLEX [Suspect]
     Active Substance: ESCITALOPRAM OXALATE
     Route: 048
     Dates: start: 200905, end: 201009
  3. TERALITHE [Suspect]
     Active Substance: LITHIUM CARBONATE
     Route: 048
     Dates: start: 201309
  4. ABILIFY [Suspect]
     Active Substance: ARIPIPRAZOLE
     Indication: BIPOLAR DISORDER
     Dosage: MAY09-MAY10:15MG?MAY10-SEP13:10MG?FEB14-JUL14:15MG
     Route: 048
     Dates: start: 200905, end: 20140710
  5. NOZINAN [Suspect]
     Active Substance: LEVOMEPROMAZINE
     Route: 048
     Dates: start: 2010

REACTIONS (3)
  - Pathological gambling [Recovered/Resolved]
  - Dysthymic disorder [Unknown]
  - Suicidal ideation [Unknown]

NARRATIVE: CASE EVENT DATE: 2009
